FAERS Safety Report 9916482 (Version 1)
Quarter: 2014Q1

REPORT INFORMATION
  Report Type: Spontaneous
  Country: US (occurrence: None)
  Receive Date: 20140219
  Receipt Date: 20140219
  Transmission Date: 20141002
  Serious: Yes (Other)
  Sender: FDA-Public Use
  Company Number: 2014P1001187

PATIENT
  Sex: 0

DRUGS (2)
  1. EPINEPHRINE [Suspect]
     Route: 042
  2. SEVERAL OTHER MEDICATIONS INTRAVENOUSLY [Concomitant]

REACTIONS (3)
  - Ventricular tachycardia [None]
  - Vomiting [None]
  - Incorrect route of drug administration [None]
